FAERS Safety Report 9761417 (Version 2)
Quarter: 2013Q4

REPORT INFORMATION
  Report Type: Report from Study
  Country: CA (occurrence: CA)
  Receive Date: 20131216
  Receipt Date: 20131216
  Transmission Date: 20140711
  Serious: Yes (Other)
  Sender: FDA-Public Use
  Company Number: PHHY2011CA109327

PATIENT
  Age: 46 Year
  Sex: Male

DRUGS (2)
  1. GILENYA [Suspect]
     Indication: RELAPSING-REMITTING MULTIPLE SCLEROSIS
     Dosage: 0.5 MG, QD
     Route: 048
     Dates: start: 20110926
  2. ANTIFUNGALS [Suspect]
     Indication: FUNGAL INFECTION

REACTIONS (10)
  - Central nervous system lesion [Unknown]
  - Atrophy [Unknown]
  - Lymphocyte count decreased [Unknown]
  - Hypersensitivity [Unknown]
  - Neck pain [Unknown]
  - Skin discolouration [Unknown]
  - Affective disorder [Unknown]
  - Headache [Recovering/Resolving]
  - Gingivitis [Unknown]
  - Fungal infection [Unknown]
